FAERS Safety Report 9458269 (Version 1)
Quarter: 2013Q3

REPORT INFORMATION
  Report Type: Spontaneous
  Country: IT (occurrence: None)
  Receive Date: 20130812
  Receipt Date: 20130812
  Transmission Date: 20140515
  Serious: Yes (Other)
  Sender: FDA-Public Use
  Company Number: GER/ITL/13/0033805

PATIENT
  Age: 86 Year
  Sex: Male

DRUGS (9)
  1. AMLODIPINE [Suspect]
     Indication: HYPERTENSION
     Route: 048
     Dates: start: 20100101, end: 20130615
  2. ALDACTONE (SPIRONOLACTONE) [Concomitant]
  3. LANSOX (LANSOPRAZOLE) [Concomitant]
  4. CORTONE ACETATE (CORTISONE ACETATE) [Concomitant]
  5. CLEXANE (ENOXAPARIN SODIUM) [Concomitant]
  6. MOVICOL POWDER (POLYETHYL.GLYC.W/POTAS.CHLOR./SOD.BICARB. [Concomitant]
  7. MYLICON (SIMETICONE) [Concomitant]
  8. ZOLPIDEM TARTRATE (ZOLPIDEM TARTRATE) [Concomitant]
  9. CALCIUM CARBONATE (CALCIUM CARBONATE) [Concomitant]

REACTIONS (4)
  - Hypotension [None]
  - Loss of consciousness [None]
  - Alanine aminotransferase increased [None]
  - Aspartate aminotransferase increased [None]
